FAERS Safety Report 4876192-7 (Version None)
Quarter: 2006Q1

REPORT INFORMATION
  Report Type: 
  Country: None (occurrence: None)
  Receive Date: 20060110
  Receipt Date: 20060105
  Transmission Date: 20060701
  Serious: Yes (Other)
  Sender: FDA-Public Use
  Company Number: US-JNJFOC-20060100638

PATIENT
  Age: 61 Year
  Sex: Male

DRUGS (3)
  1. TYLENOL [Suspect]
     Indication: SHOULDER PAIN
  2. TYLENOL [Suspect]
     Dosage: 2 ^TABLETS^ 4 TIMES DAILY.
  3. CARDILATE [Concomitant]
     Dosage: FOUR TO SIX TABLETS A DAY.

REACTIONS (1)
  - THROMBOCYTOPENIC PURPURA [None]
